FAERS Safety Report 20979864 (Version 1)
Quarter: 2022Q2

REPORT INFORMATION
  Report Type: Spontaneous
  Country: DE (occurrence: DE)
  Receive Date: 20220620
  Receipt Date: 20220620
  Transmission Date: 20220721
  Serious: Yes (Death)
  Sender: FDA-Public Use
  Company Number: None

PATIENT
  Age: 68 Year
  Sex: Male

DRUGS (1)
  1. GAZYVA [Suspect]
     Active Substance: OBINUTUZUMAB
     Indication: Chronic lymphocytic leukaemia
     Dosage: 100 - 900 MG AN ABFOLGENDEN TAGEN
     Route: 042
     Dates: start: 20220526, end: 20220527

REACTIONS (5)
  - Coronary artery disease [Fatal]
  - Circulatory collapse [Fatal]
  - Cardiac arrest [Fatal]
  - Arteriospasm coronary [Fatal]
  - Angina pectoris [Fatal]

NARRATIVE: CASE EVENT DATE: 20220529
